FAERS Safety Report 10100712 (Version 2)
Quarter: 2014Q3

REPORT INFORMATION
  Report Type: Spontaneous
  Country: US (occurrence: US)
  Receive Date: 20140423
  Receipt Date: 20140924
  Transmission Date: 20150326
  Serious: Yes (Hospitalization, Other)
  Sender: FDA-Public Use
  Company Number: US-ABBVIE-14P-163-1225996-00

PATIENT
  Age: 55 Year
  Sex: Male
  Weight: 132.57 kg

DRUGS (1)
  1. ANDROGEL [Suspect]
     Active Substance: TESTOSTERONE
     Indication: BLOOD TESTOSTERONE DECREASED
     Dosage: 3 PUMPS DAILY, CUTANEOUS
     Dates: start: 20120217, end: 20140404

REACTIONS (4)
  - Atrial fibrillation [Unknown]
  - Hypertension [Unknown]
  - Pulmonary embolism [Recovered/Resolved]
  - Syncope [Unknown]

NARRATIVE: CASE EVENT DATE: 20140404
